FAERS Safety Report 5450664-9 (Version None)
Quarter: 2007Q3

REPORT INFORMATION
  Report Type: 
  Country: None (occurrence: None)
  Receive Date: 20070910
  Receipt Date: 20070906
  Transmission Date: 20080115
  Serious: Yes (Hospitalization)
  Sender: FDA-Public Use
  Company Number: 002#4#2007-00153

PATIENT
  Age: 72 Year
  Sex: Female

DRUGS (17)
  1. NEUPRO-6MG/ 24H (ROTIGOTINE) [Suspect]
     Indication: DRUG USE FOR UNKNOWN INDICATION
     Dosage: 6MG/24HR, 1 IN 1 D, TRANSDERMAL
     Route: 062
     Dates: start: 20070807, end: 20070807
  2. ISTRADEFYLLINE (KW-6002) [Suspect]
     Indication: PARKINSON'S DISEASE
     Dates: start: 20050801
  3. CARBIDOPA [Concomitant]
  4. LEVODOPA [Concomitant]
  5. MIRAPEX [Concomitant]
  6. ENTACAPONE [Concomitant]
  7. ASPIRIN [Concomitant]
  8. BACLOFEN [Concomitant]
  9. FELODIPINE [Concomitant]
  10. DIOVAN [Concomitant]
  11. HYDROCHLOROTHIAZIDE [Concomitant]
  12. POTASSIUM CHLORIDE [Concomitant]
  13. LEVOTHYROXINE SODIUM [Concomitant]
  14. ZETIA [Concomitant]
  15. EPIDURAL STERIOD INJECTIONS [Concomitant]
  16. TYLENOL (CAPLET) [Concomitant]
  17. PREMARIN [Concomitant]

REACTIONS (5)
  - DRUG INTERACTION [None]
  - MALAISE [None]
  - MUSCLE SPASMS [None]
  - SPEECH DISORDER [None]
  - TREMOR [None]
